FAERS Safety Report 6029419-2 (Version None)
Quarter: 2009Q1

REPORT INFORMATION
  Report Type: 
  Country: None (occurrence: None)
  Receive Date: 20090105
  Receipt Date: 20081111
  Transmission Date: 20090719
  Serious: Yes (Other)
  Sender: FDA-Public Use
  Company Number: 2008-188864-NL

PATIENT
  Age: 15 Year
  Sex: Female

DRUGS (7)
  1. DEXAMETHASONE TAB [Suspect]
     Indication: CHEMOTHERAPY
  2. METHOTREXATE SODIUM [Concomitant]
  3. LEVETIRACETAM [Concomitant]
  4. MERCAPTOPURINE [Concomitant]
  5. DAPSONE [Concomitant]
  6. FILGRASTIM [Concomitant]
  7. IMMUNE GLOBULIN INTRAVENOUS (HUMAN) [Concomitant]

REACTIONS (13)
  - ATAXIA [None]
  - BLOOD PRESSURE DECREASED [None]
  - CHORIOMENINGITIS LYMPHOCYTIC [None]
  - CONVULSION [None]
  - DILATATION VENTRICULAR [None]
  - HEART RATE INCREASED [None]
  - HEMIPARESIS [None]
  - HYDROCEPHALUS [None]
  - INTRAVENTRICULAR HAEMORRHAGE [None]
  - LEUKAEMIA RECURRENT [None]
  - NEUROLOGICAL DECOMPENSATION [None]
  - POST PROCEDURAL COMPLICATION [None]
  - THROMBOSIS [None]
